FAERS Safety Report 8995879 (Version 2)
Quarter: 2013Q1

REPORT INFORMATION
  Report Type: Spontaneous
  Country: US (occurrence: US)
  Receive Date: 20130103
  Receipt Date: 20130125
  Transmission Date: 20140127
  Serious: Yes (Hospitalization, Other)
  Sender: FDA-Public Use
  Company Number: US-ALEXION PHARMACEUTICALS INC.-A201202507

PATIENT
  Age: 40 Year
  Sex: Female

DRUGS (1)
  1. SOLIRIS 300MG [Suspect]
     Indication: PAROXYSMAL NOCTURNAL HAEMOGLOBINURIA
     Dosage: UNK
     Route: 042

REACTIONS (9)
  - Headache [Unknown]
  - Haemoglobin decreased [Unknown]
  - Fall [Unknown]
  - Bronchitis [Unknown]
  - Cough [Unknown]
  - Fatigue [Unknown]
  - Tinnitus [Unknown]
  - Chest pain [Unknown]
  - Asthenia [Unknown]
